FAERS Safety Report 25767423 (Version 1)
Quarter: 2025Q3

REPORT INFORMATION
  Report Type: Report from Study
  Country: EU (occurrence: EU)
  Receive Date: 20250905
  Receipt Date: 20250905
  Transmission Date: 20251020
  Serious: Yes (Other)
  Sender: TEVA
  Company Number: EU-TEVA-VS-3367457

PATIENT
  Age: 55 Year
  Sex: Female

DRUGS (1)
  1. AJOVY [Suspect]
     Active Substance: FREMANEZUMAB-VFRM
     Indication: Migraine
     Route: 058
     Dates: start: 20241115, end: 20250527

REACTIONS (8)
  - Hypertension [Not Recovered/Not Resolved]
  - Rash [Not Recovered/Not Resolved]
  - Palpitations [Not Recovered/Not Resolved]
  - Sleep disorder [Not Recovered/Not Resolved]
  - Injection site swelling [Not Recovered/Not Resolved]
  - Injection site pain [Not Recovered/Not Resolved]
  - Injection site pruritus [Not Recovered/Not Resolved]
  - Inappropriate schedule of product administration [Unknown]

NARRATIVE: CASE EVENT DATE: 20250301
